FAERS Safety Report 5464286-7 (Version None)
Quarter: 2007Q3

REPORT INFORMATION
  Report Type: 
  Country: None (occurrence: None)
  Receive Date: 20070921
  Receipt Date: 20070914
  Transmission Date: 20080115
  Serious: Yes (Hospitalization)
  Sender: FDA-Public Use
  Company Number: B0483925A

PATIENT
  Age: 75 Year
  Sex: Male
  Weight: 48 kg

DRUGS (5)
  1. PROPADERM [Suspect]
     Indication: PSORIASIS
     Route: 061
     Dates: start: 19970101, end: 20070416
  2. DERMOVATE [Suspect]
     Indication: PSORIASIS
     Route: 061
     Dates: start: 19970101, end: 20070416
  3. DERMOVATE [Concomitant]
     Route: 061
     Dates: start: 19970101, end: 20070416
  4. UNKNOWN NAME [Concomitant]
     Indication: PSORIASIS
     Route: 061
     Dates: start: 19970101, end: 20070416
  5. PROTOPIC [Concomitant]

REACTIONS (6)
  - ADRENOCORTICAL INSUFFICIENCY ACUTE [None]
  - ANOREXIA [None]
  - BLOOD PRESSURE DECREASED [None]
  - DECREASED APPETITE [None]
  - INCREASED VISCOSITY OF BRONCHIAL SECRETION [None]
  - MECHANICAL VENTILATION [None]
